FAERS Safety Report 23487721 (Version 1)
Quarter: 2024Q1

REPORT INFORMATION
  Report Type: Report from Study
  Country: US (occurrence: None)
  Receive Date: 20240206
  Receipt Date: 20240206
  Transmission Date: 20240410
  Serious: Yes (Other)
  Sender: FDA-Public Use
  Company Number: 2024A023682

PATIENT
  Sex: Female

DRUGS (1)
  1. FARXIGA [Suspect]
     Active Substance: DAPAGLIFLOZIN PROPANEDIOL
     Route: 048
     Dates: start: 202308

REACTIONS (10)
  - Pulmonary hypertension [Unknown]
  - Left ventricular failure [Unknown]
  - Cardiac failure congestive [Unknown]
  - Dyspnoea [Unknown]
  - Alopecia [Unknown]
  - Dehydration [Unknown]
  - Constipation [Unknown]
  - Nocturia [Unknown]
  - Sleep disorder [Unknown]
  - Weight decreased [Unknown]
